FAERS Safety Report 4811345-5 (Version None)
Quarter: 2005Q4

REPORT INFORMATION
  Report Type: 
  Country: None (occurrence: None)
  Receive Date: 20051026
  Receipt Date: 20051026
  Transmission Date: 20060501
  Serious: Yes (Other)
  Sender: FDA-Public Use
  Company Number: None

PATIENT
  Sex: Male
  Weight: 55.3388 kg

DRUGS (1)
  1. CARBAMAZEPINE [Suspect]
     Indication: CONVULSION
     Dosage: 100 MG TWO TID
     Dates: start: 20050101, end: 20050919

REACTIONS (2)
  - AGGRESSION [None]
  - PHARMACEUTICAL PRODUCT COMPLAINT [None]
